FAERS Safety Report 22108564 (Version 1)
Quarter: 2023Q1

REPORT INFORMATION
  Report Type: Report from Study
  Country: KR (occurrence: KR)
  Receive Date: 20230317
  Receipt Date: 20230317
  Transmission Date: 20230418
  Serious: Yes (Hospitalization, Other)
  Sender: FDA-Public Use
  Company Number: KR-002147023-NVSC2022KR171564

PATIENT
  Age: 65 Year
  Sex: Female
  Weight: 43.5 kg

DRUGS (29)
  1. LUTATHERA [Suspect]
     Active Substance: LUTETIUM OXODOTREOTIDE LU-177
     Indication: Gastroenteropancreatic neuroendocrine tumour disease
     Dosage: 194.9 MCI
     Route: 042
     Dates: start: 20220616, end: 20220616
  2. LUTATHERA [Suspect]
     Active Substance: LUTETIUM OXODOTREOTIDE LU-177
     Dosage: 7.4 GBQ
     Route: 042
     Dates: start: 20220616, end: 20220616
  3. LUTATHERA [Suspect]
     Active Substance: LUTETIUM OXODOTREOTIDE LU-177
     Dosage: 7.4 GBQ
     Route: 042
     Dates: start: 20220825, end: 20220825
  4. LUTATHERA [Suspect]
     Active Substance: LUTETIUM OXODOTREOTIDE LU-177
     Dosage: 7.4 GBQ
     Route: 042
     Dates: start: 20221103, end: 20221103
  5. LUTATHERA [Suspect]
     Active Substance: LUTETIUM OXODOTREOTIDE LU-177
     Dosage: 7.4 GBQ
     Route: 042
     Dates: start: 20230202, end: 20230202
  6. ARGININE\LYSINE [Suspect]
     Active Substance: ARGININE\LYSINE
     Indication: Renal disorder prophylaxis
     Dosage: 1000 ML
     Route: 042
     Dates: start: 20220616, end: 20220616
  7. ARGININE\LYSINE [Suspect]
     Active Substance: ARGININE\LYSINE
     Dosage: 1000 ML
     Route: 042
     Dates: start: 20220825, end: 20220825
  8. ARGININE\LYSINE [Suspect]
     Active Substance: ARGININE\LYSINE
     Dosage: 1000 ML
     Route: 042
     Dates: start: 20221103, end: 20221103
  9. ARGININE\LYSINE [Suspect]
     Active Substance: ARGININE\LYSINE
     Dosage: 1000 ML
     Route: 042
     Dates: start: 20230202, end: 20230202
  10. LAMINA-G [Concomitant]
     Indication: Gastritis prophylaxis
     Dosage: 20 ML, QID
     Route: 048
     Dates: start: 20220620, end: 20220626
  11. LAMINA-G [Concomitant]
     Dosage: 20 ML, QID
     Route: 048
     Dates: start: 20220826, end: 20220924
  12. LAMINA-G [Concomitant]
     Dosage: 20 ML, QID
     Route: 048
     Dates: start: 20221102, end: 20221130
  13. LAMINA-G [Concomitant]
     Dosage: 20 ML, QID
     Route: 048
     Dates: start: 20230110, end: 20230304
  14. PERI OLIMEL N4E [Concomitant]
     Indication: Nutritional supplementation
     Dosage: 1000 ML, QD
     Route: 042
     Dates: start: 20230202, end: 20230203
  15. PANTOPRAZOLE SODIUM [Concomitant]
     Active Substance: PANTOPRAZOLE SODIUM
     Indication: Gastritis prophylaxis
     Dosage: 1 DOSAGE FORM, QD
     Route: 048
     Dates: start: 20220620, end: 20220626
  16. PANTOPRAZOLE SODIUM [Concomitant]
     Active Substance: PANTOPRAZOLE SODIUM
     Indication: Prophylaxis against gastrointestinal ulcer
     Dosage: 40 MG, QD
     Route: 042
     Dates: start: 20221103, end: 20221103
  17. DIETARY SUPPLEMENT\HERBALS\MILK THISTLE [Concomitant]
     Active Substance: DIETARY SUPPLEMENT\HERBALS\MILK THISTLE
     Indication: Antiviral prophylaxis
     Dosage: 1 DOSAGE FORM, BID (STRENGTH: 140)
     Route: 048
     Dates: start: 20220615, end: 20220719
  18. DIETARY SUPPLEMENT\HERBALS\MILK THISTLE [Concomitant]
     Active Substance: DIETARY SUPPLEMENT\HERBALS\MILK THISTLE
     Dosage: 1 DOSAGE FORM, BID
     Route: 048
     Dates: start: 20220824, end: 20220924
  19. DIETARY SUPPLEMENT\HERBALS\MILK THISTLE [Concomitant]
     Active Substance: DIETARY SUPPLEMENT\HERBALS\MILK THISTLE
     Dosage: 1 DOSAGE FORM, BID
     Route: 048
     Dates: start: 20221102, end: 20221130
  20. DEXILANT [Concomitant]
     Active Substance: DEXLANSOPRAZOLE
     Indication: Gastritis prophylaxis
     Dosage: 1 DOSAGE FORM, QD (DR)
     Route: 048
     Dates: start: 20220712, end: 20220924
  21. DEXILANT [Concomitant]
     Active Substance: DEXLANSOPRAZOLE
     Dosage: 1 DOSAGE FORM, QD
     Route: 048
     Dates: start: 20221102, end: 20221130
  22. DEXILANT [Concomitant]
     Active Substance: DEXLANSOPRAZOLE
     Dosage: 1 DOSAGE FORM, QD
     Route: 048
     Dates: start: 20221209, end: 20230304
  23. NEXIUM [Concomitant]
     Active Substance: ESOMEPRAZOLE MAGNESIUM
     Indication: Gastritis prophylaxis
     Dosage: 1 DOSAGE FORM, QD
     Route: 048
     Dates: start: 20220825, end: 20220826
  24. TRIGEL [Concomitant]
     Indication: Gastritis prophylaxis
     Dosage: 10 ML, QID (SUSP)
     Route: 048
     Dates: start: 20230202, end: 20230304
  25. WINUF [Concomitant]
     Indication: Nutritional supplementation
     Dosage: 1085 ML, QD
     Route: 042
     Dates: start: 20220825, end: 20220826
  26. WINUF [Concomitant]
     Dosage: 1085 ML, QD
     Route: 042
     Dates: start: 20221103, end: 20221104
  27. VITAMINS [Concomitant]
     Active Substance: VITAMINS
     Indication: Vitamin supplementation
     Dosage: 5 ML, QD
     Route: 042
     Dates: start: 20220825, end: 20220826
  28. VITAMINS [Concomitant]
     Active Substance: VITAMINS
     Dosage: 5 ML, QD
     Route: 042
     Dates: start: 20221103, end: 20221104
  29. VITAMINS [Concomitant]
     Active Substance: VITAMINS
     Dosage: 5 ML, QD
     Route: 042
     Dates: start: 20230202, end: 20230203

REACTIONS (10)
  - Abdominal pain [Recovered/Resolved]
  - Vomiting [Recovered/Resolved]
  - Diarrhoea [Recovered/Resolved]
  - Abdominal pain [Recovered/Resolved]
  - Vomiting [Recovered/Resolved]
  - Abdominal pain [Recovered/Resolved]
  - Abdominal pain [Recovered/Resolved]
  - Dyspepsia [Recovered/Resolved]
  - Nausea [Recovered/Resolved]
  - Off label use [Unknown]

NARRATIVE: CASE EVENT DATE: 20220616
